FAERS Safety Report 7435016-4 (Version None)
Quarter: 2011Q2

REPORT INFORMATION
  Report Type: 
  Country: None (occurrence: None)
  Receive Date: 20110425
  Receipt Date: 20110419
  Transmission Date: 20111010
  Serious: No
  Sender: FDA-Public Use
  Company Number: US-B.I. PHARMACEUTICALS,INC./RIDGEFIELD-2011-BP-02289BP

PATIENT
  Sex: Male

DRUGS (16)
  1. LEXAPRO [Concomitant]
     Dosage: 20 MG
     Route: 048
  2. SPIRIVA [Concomitant]
     Route: 055
  3. PROAIR HFA [Concomitant]
     Route: 055
  4. PRILOSEC OTC [Concomitant]
     Dosage: 20 MG
     Route: 048
  5. TRAZODONE HCL [Concomitant]
     Route: 048
  6. PRADAXA [Suspect]
     Indication: ATRIAL FIBRILLATION
     Dosage: 300 MG
     Route: 048
     Dates: start: 20110108, end: 20110127
  7. ADVAIR DISKUS 100/50 [Concomitant]
     Dosage: 2 PUF
     Route: 055
  8. ACETAMINOPHEN [Concomitant]
     Route: 048
  9. MUCINEX [Concomitant]
     Route: 048
  10. CARDIZEM LA [Concomitant]
     Route: 048
  11. ALBUTEROL [Concomitant]
  12. MULTI-VITAMIN [Concomitant]
     Route: 048
  13. OXYGEN [Concomitant]
     Route: 045
  14. ATROVENT [Concomitant]
     Route: 055
  15. MULTIVITAMIN [Concomitant]
     Route: 048
  16. DUONEB [Concomitant]
     Route: 055

REACTIONS (6)
  - BLOOD URINE PRESENT [None]
  - DYSPEPSIA [None]
  - POLLAKIURIA [None]
  - NAUSEA [None]
  - HAEMATURIA [None]
  - HEADACHE [None]
